FAERS Safety Report 18597481 (Version 1)
Quarter: 2020Q4

REPORT INFORMATION
  Report Type: Spontaneous
  Country: US (occurrence: US)
  Receive Date: 20201210
  Receipt Date: 20201210
  Transmission Date: 20210114
  Serious: Yes (Other)
  Sender: FDA-Public Use
  Company Number: US-BIOGEN-2020BI00953389

PATIENT
  Sex: Male

DRUGS (1)
  1. TECFIDERA [Suspect]
     Active Substance: DIMETHYL FUMARATE
     Indication: MULTIPLE SCLEROSIS
     Route: 065
     Dates: start: 20150318

REACTIONS (10)
  - Urinary tract disorder [Unknown]
  - Fatigue [Unknown]
  - Eye movement disorder [Unknown]
  - Neck pain [Unknown]
  - Mobility decreased [Unknown]
  - Back pain [Unknown]
  - Gastrointestinal disorder [Unknown]
  - Suicidal ideation [Unknown]
  - Eye pain [Unknown]
  - Oropharyngeal pain [Unknown]
